FAERS Safety Report 7705466-7 (Version None)
Quarter: 2011Q3

REPORT INFORMATION
  Report Type: 
  Country: None (occurrence: None)
  Receive Date: 20110823
  Receipt Date: 20110823
  Transmission Date: 20111222
  Serious: Yes (Hospitalization)
  Sender: FDA-Public Use
  Company Number: None

PATIENT
  Age: 60 Year
  Sex: Female
  Weight: 110.6777 kg

DRUGS (3)
  1. GEMCITABINE [Suspect]
     Indication: BILE DUCT CANCER
     Dosage: 100MG/M2 IV Q2WKS
     Dates: start: 20110321, end: 20110613
  2. OXALIPLATIN [Suspect]
     Indication: BILE DUCT CANCER
     Dosage: 2400MG/M2 IV Q 2WK
     Dates: start: 20110322, end: 20110614
  3. ERLOTINIB HYDROCHLORIDE [Suspect]
     Indication: BILE DUCT CANCER
     Dosage: 100MG DAILY X 6 D Q2WKS
     Dates: start: 20110323, end: 20110620

REACTIONS (6)
  - RETROPERITONEAL ABSCESS [None]
  - ADNEXA UTERI MASS [None]
  - DIVERTICULITIS [None]
  - ESCHERICHIA TEST POSITIVE [None]
  - TOXICITY TO VARIOUS AGENTS [None]
  - DIVERTICULAR PERFORATION [None]
